FAERS Safety Report 4357198-3 (Version None)
Quarter: 2004Q2

REPORT INFORMATION
  Report Type: 
  Country: None (occurrence: None)
  Receive Date: 20040507
  Receipt Date: 20040426
  Transmission Date: 20050107
  Serious: Yes (Other)
  Sender: FDA-Public Use
  Company Number: 2004028106

PATIENT
  Sex: Female
  Weight: 78.0187 kg

DRUGS (7)
  1. LIPITOR [Suspect]
     Indication: ILL-DEFINED DISORDER
     Dosage: 10 MG (DAILY), ORAL
     Route: 048
     Dates: end: 20040402
  2. CELECOXIB (CELECOXIB) [Suspect]
     Indication: OSTEOARTHRITIS
     Dates: start: 20020101, end: 20020101
  3. ATENOLOL [Concomitant]
  4. ETRAFON-D (AMITRIPTYLINE HYDROCHLORIDE, PERPHENAZINE) [Concomitant]
  5. LEVOTHYROXINE SODIUM [Concomitant]
  6. FENFLURAMINE [Concomitant]
  7. PHENTERMINE [Concomitant]

REACTIONS (9)
  - AORTIC STENOSIS [None]
  - AORTIC VALVE CALCIFICATION [None]
  - BODY HEIGHT DECREASED [None]
  - CHONDROPATHY [None]
  - DIFFICULTY IN WALKING [None]
  - DIVERTICULITIS [None]
  - HEPATIC ENZYME INCREASED [None]
  - MYALGIA [None]
  - OEDEMA PERIPHERAL [None]
